FAERS Safety Report 9036974 (Version 2)
Quarter: 2013Q1

REPORT INFORMATION
  Report Type: Spontaneous
  Country: CA (occurrence: None)
  Receive Date: 20121213
  Receipt Date: 20130206
  Transmission Date: 20140127
  Serious: Yes (Other)
  Sender: FDA-Public Use
  Company Number: 2012034190

PATIENT
  Age: 78 Year
  Sex: Female

DRUGS (2)
  1. PRIVIGEN [Suspect]
     Route: 042
  2. GAMUNEX [Suspect]

REACTIONS (2)
  - Haemolysis [None]
  - Transfusion reaction [None]
